FAERS Safety Report 11485311 (Version 1)
Quarter: 2015Q3

REPORT INFORMATION
  Report Type: Spontaneous
  Country: US (occurrence: US)
  Receive Date: 20150903
  Receipt Date: 20150903
  Transmission Date: 20151125
  Serious: No
  Sender: FDA-Public Use
  Company Number: US-ELI_LILLY_AND_COMPANY-US201209005269

PATIENT
  Age: 40 Year
  Sex: Male

DRUGS (1)
  1. CYMBALTA [Suspect]
     Active Substance: DULOXETINE HYDROCHLORIDE
     Indication: DEPRESSION
     Dosage: 30 MG, QD
     Dates: start: 20120520

REACTIONS (15)
  - Abnormal behaviour [Unknown]
  - Hiccups [Unknown]
  - Eating disorder [Unknown]
  - Cold sweat [Unknown]
  - Choking [Unknown]
  - Drug withdrawal syndrome [Unknown]
  - Nervousness [Unknown]
  - Vomiting [Unknown]
  - Anger [Unknown]
  - Agitation [Unknown]
  - Wrong technique in product usage process [Unknown]
  - Tremor [Unknown]
  - Mood swings [Unknown]
  - Pruritus [Unknown]
  - Pain [Unknown]
